FAERS Safety Report 6264080-3 (Version None)
Quarter: 2009Q3

REPORT INFORMATION
  Report Type: 
  Country: None (occurrence: None)
  Receive Date: 20090710
  Receipt Date: 20090624
  Transmission Date: 20100115
  Serious: Yes (Hospitalization)
  Sender: FDA-Public Use
  Company Number: AU-JNJFOC-20090104994

PATIENT
  Sex: Male

DRUGS (3)
  1. REMINYL [Suspect]
     Route: 048
  2. REMINYL [Suspect]
     Route: 048
  3. REMINYL [Suspect]
     Indication: DEMENTIA
     Route: 048

REACTIONS (11)
  - CONFUSIONAL STATE [None]
  - CONSCIOUSNESS FLUCTUATING [None]
  - DELIRIUM [None]
  - DISORIENTATION [None]
  - GASTROINTESTINAL HYPOMOTILITY [None]
  - HYPERTONIA [None]
  - LARGE INTESTINAL OBSTRUCTION [None]
  - MYOCLONUS [None]
  - PNEUMONIA [None]
  - PYREXIA [None]
  - SINUS TACHYCARDIA [None]
